FAERS Safety Report 8302360-8 (Version None)
Quarter: 2012Q2

REPORT INFORMATION
  Report Type: 
  Country: None (occurrence: None)
  Receive Date: 20120420
  Receipt Date: 20120410
  Transmission Date: 20120825
  Serious: Yes (Other)
  Sender: FDA-Public Use
  Company Number: JP-JNJFOC-20120302157

PATIENT
  Age: 50 Year
  Sex: Female

DRUGS (25)
  1. TEGRETOL [Concomitant]
     Indication: ANALGESIC THERAPY
     Route: 048
  2. LYRICA [Concomitant]
     Route: 048
  3. LYRICA [Concomitant]
     Indication: ANALGESIC THERAPY
     Dosage: 75 MG 1 PER 1 DAY
     Route: 048
  4. LYRICA [Concomitant]
     Route: 048
  5. LYRICA [Concomitant]
     Route: 048
  6. MEDICON [Concomitant]
     Indication: PAIN
     Route: 048
  7. TRAMADOL HYDROCHLORIDE AND ACETAMINOPHEN [Suspect]
     Dosage: 4 TABLETS PER DAY, 4 TIMES DAILY
     Route: 048
     Dates: start: 20111213
  8. TRAMADOL HYDROCHLORIDE AND ACETAMINOPHEN [Suspect]
     Dosage: 3 PER ONE DAY
     Route: 048
     Dates: start: 20111223
  9. TRAMADOL HYDROCHLORIDE AND ACETAMINOPHEN [Suspect]
     Dosage: 4 TABLETS PER DAY
     Route: 048
     Dates: start: 20111223
  10. TRAMADOL HYDROCHLORIDE AND ACETAMINOPHEN [Suspect]
     Dosage: 3 PER ONE DAY
     Route: 048
     Dates: start: 20111213, end: 20111214
  11. MORPHINE HYDROCHLORIDE [Suspect]
     Indication: ANALGESIC THERAPY
     Route: 065
     Dates: end: 20120301
  12. MAGNESIUM SULFATE [Concomitant]
     Route: 048
  13. TEGRETOL [Concomitant]
     Indication: NEURALGIA
     Route: 048
  14. LYRICA [Concomitant]
     Route: 048
  15. LYRICA [Concomitant]
     Indication: PAIN
     Route: 048
  16. MEXITIL [Concomitant]
     Indication: PAIN
     Route: 065
  17. TRAMADOL HYDROCHLORIDE AND ACETAMINOPHEN [Suspect]
     Indication: PAIN
     Dosage: 3 TABLETS PER DAY, 3 TIMES A DAY
     Route: 048
  18. TOLEDOMIN [Interacting]
     Indication: DEPRESSION
     Dosage: 4 DF 1 PER 1 DAY
     Route: 048
     Dates: end: 20120316
  19. LYRICA [Concomitant]
     Route: 048
  20. GASMOTIN [Concomitant]
     Indication: GASTRITIS
     Route: 048
  21. ROHYPNOL [Concomitant]
     Indication: INSOMNIA
     Dosage: AS NECESSARY
     Route: 048
  22. MORPHINE HYDROCHLORIDE [Suspect]
     Indication: PAIN
     Route: 065
     Dates: end: 20120301
  23. ROHYPNOL [Concomitant]
     Indication: SLEEP DISORDER THERAPY
     Dosage: AS NECESSARY
     Route: 048
  24. LYRICA [Concomitant]
     Dosage: 75 MG 1 PER 1 DAY
     Route: 048
  25. DAI-KENCHU-TO [Concomitant]
     Route: 048

REACTIONS (3)
  - INADEQUATE ANALGESIA [None]
  - LIVER FUNCTION TEST ABNORMAL [None]
  - DRUG INTERACTION [None]
